FAERS Safety Report 23889343 (Version 1)
Quarter: 2024Q2

REPORT INFORMATION
  Report Type: Spontaneous
  Country: US (occurrence: None)
  Receive Date: 20240523
  Receipt Date: 20240523
  Transmission Date: 20240716
  Serious: No
  Sender: FDA-Public Use
  Company Number: None

PATIENT
  Age: 56 Year
  Sex: Female
  Weight: 99 kg

DRUGS (6)
  1. SF 5000 PLUS [Suspect]
     Active Substance: SODIUM FLUORIDE
     Indication: Dental caries
     Dosage: FREQUENCY : TWICE A DAY;?
     Route: 048
     Dates: start: 20240123, end: 20240301
  2. Garden of Life vitamins [Concomitant]
  3. FISH OIL [Concomitant]
     Active Substance: FISH OIL
  4. wild alaskan salmon [Concomitant]
  5. METHYLCOBALAMIN [Concomitant]
     Active Substance: METHYLCOBALAMIN
  6. BORON [Concomitant]
     Active Substance: BORON

REACTIONS (2)
  - Enamel anomaly [None]
  - Gingival bleeding [None]

NARRATIVE: CASE EVENT DATE: 20240229
